FAERS Safety Report 6149508-1 (Version None)
Quarter: 2009Q2

REPORT INFORMATION
  Report Type: 
  Country: None (occurrence: None)
  Receive Date: 20090409
  Receipt Date: 20090402
  Transmission Date: 20091009
  Serious: Yes (Hospitalization)
  Sender: FDA-Public Use
  Company Number: US-BAYER-200839255NA

PATIENT
  Age: 76 Year
  Sex: Male
  Weight: 64 kg

DRUGS (17)
  1. SORAFENIB [Suspect]
     Indication: MESOTHELIOMA
     Dosage: TOTAL DAILY DOSE: 800 MG  UNIT DOSE: 200 MG
     Route: 048
     Dates: start: 20081002, end: 20081111
  2. VORINOSTAT [Suspect]
     Indication: MESOTHELIOMA
     Dosage: TOTAL DAILY DOSE: 400 MG
     Route: 048
     Dates: start: 20081002, end: 20081104
  3. VICODIN [Concomitant]
     Indication: PAIN
     Dosage: 3-4 TABLETS PER DAY
     Route: 048
     Dates: start: 20080513
  4. NEXIUM [Concomitant]
     Indication: GASTROOESOPHAGEAL REFLUX DISEASE
     Dosage: TOTAL DAILY DOSE: 20 MG
     Dates: start: 20080101
  5. ZOCOR [Concomitant]
     Indication: HYPERCHOLESTEROLAEMIA
     Dosage: TOTAL DAILY DOSE: 40 MG
     Dates: start: 20050101
  6. LISINOPRIL [Concomitant]
     Indication: HYPERTENSION
     Dosage: TOTAL DAILY DOSE: 20 MG
     Dates: start: 20030709
  7. FLOMAX [Concomitant]
     Indication: BENIGN PROSTATIC HYPERPLASIA
     Dosage: TOTAL DAILY DOSE: 0.4 MG
     Dates: start: 20060513
  8. HYDROCHLOROTHIAZIDE [Concomitant]
     Indication: BLOOD PRESSURE MANAGEMENT
     Dates: start: 20011203
  9. ASPIRIN [Concomitant]
     Indication: CARDIOVASCULAR EVENT PROPHYLAXIS
     Dosage: TOTAL DAILY DOSE: 81 MG
     Dates: start: 20020501
  10. MULTI-VITAMIN [Concomitant]
     Indication: VITAMIN SUPPLEMENTATION
     Dates: start: 20000101
  11. VITAMIN B-12 [Concomitant]
     Indication: VITAMIN B12 DEFICIENCY
     Dosage: TOTAL DAILY DOSE: 500 MG
     Route: 060
     Dates: start: 20040323
  12. ASCORBIC ACID [Concomitant]
     Indication: MEDICAL DIET
     Dates: start: 20000101
  13. COENZYME Q10 [Concomitant]
     Indication: VITAMIN SUPPLEMENTATION
     Dates: start: 20080101
  14. COLACE [Concomitant]
     Dates: start: 20080513
  15. EUCERIN CREAM [Concomitant]
     Indication: RASH
     Dates: start: 20081016
  16. IRON SUPPLEMENTATION [Concomitant]
     Indication: ANAEMIA
     Dosage: EXTENDED RELEASE
     Dates: start: 20081020
  17. ENSURE [Concomitant]
     Indication: MEDICAL DIET
     Dosage: 2 DRINKS DAILY
     Dates: start: 20081001

REACTIONS (1)
  - PULMONARY OEDEMA [None]
